FAERS Safety Report 4786083-8 (Version None)
Quarter: 2005Q3

REPORT INFORMATION
  Report Type: 
  Country: None (occurrence: None)
  Receive Date: 20050930
  Receipt Date: 20050921
  Transmission Date: 20060218
  Serious: Yes (Hospitalization)
  Sender: FDA-Public Use
  Company Number: 2005132646

PATIENT
  Age: 90 Year
  Sex: Female

DRUGS (6)
  1. ALDACTONE [Suspect]
     Indication: CARDIAC FAILURE
     Dosage: 150 MG, ORAL
     Route: 048
     Dates: end: 20050426
  2. AMIODARONE HCL [Suspect]
     Indication: ATRIAL FLUTTER
     Dosage: 1 DF, ORAL
     Route: 048
     Dates: end: 20050426
  3. FUROSEMIDE [Suspect]
     Indication: CARDIAC FAILURE
     Dosage: 20 MG, ORAL
     Route: 048
     Dates: end: 20050426
  4. PYOSTACINE (PRISTINAMYCIN) [Suspect]
     Indication: ILL-DEFINED DISORDER
     Dosage: ORAL
     Route: 048
     Dates: start: 20050415, end: 20050423
  5. OMEPRAZOLE [Concomitant]
  6. ACETYLSALICYLATE LYSINE (ACETYLSALICYLATE LYSINE) [Concomitant]

REACTIONS (4)
  - DERMATITIS CONTACT [None]
  - ECZEMA [None]
  - RASH PAPULAR [None]
  - TOXIC SKIN ERUPTION [None]
